FAERS Safety Report 10300395 (Version 2)
Quarter: 2014Q3

REPORT INFORMATION
  Report Type: Spontaneous
  Country: JP (occurrence: JP)
  Receive Date: 20140713
  Receipt Date: 20140812
  Transmission Date: 20150326
  Serious: Yes (Hospitalization)
  Sender: FDA-Public Use
  Company Number: JP-AMGEN-JPNSP2014052255

PATIENT
  Age: 78 Year
  Sex: Female
  Weight: 50 kg

DRUGS (4)
  1. BLOPRESS [Concomitant]
     Active Substance: CANDESARTAN CILEXETIL
     Dosage: 2 MG, QD
     Route: 048
     Dates: start: 20130710
  2. LIVALO [Concomitant]
     Active Substance: PITAVASTATIN CALCIUM
     Dosage: 1 MG, QD
     Route: 048
     Dates: start: 20120607
  3. PRALIA [Suspect]
     Active Substance: DENOSUMAB
     Indication: OSTEOPOROSIS
     Dosage: 60 MG, Q6MO
     Route: 058
     Dates: start: 20140702, end: 20140702
  4. ROZEREM [Concomitant]
     Active Substance: RAMELTEON
     Dosage: 8 MG, QD
     Route: 048
     Dates: start: 20120502

REACTIONS (1)
  - Anaphylactic reaction [Recovered/Resolved]

NARRATIVE: CASE EVENT DATE: 20140702
